FAERS Safety Report 5260737-1 (Version None)
Quarter: 2007Q1

REPORT INFORMATION
  Report Type: 
  Country: None (occurrence: None)
  Receive Date: 20070309
  Receipt Date: 20070226
  Transmission Date: 20070707
  Serious: Yes (Other)
  Sender: FDA-Public Use
  Company Number: US-AMGEN-KDL210868

PATIENT
  Sex: Female

DRUGS (2)
  1. ENBREL [Suspect]
     Indication: RHEUMATOID ARTHRITIS
     Route: 058
     Dates: start: 20040501, end: 20060901
  2. METHOTREXATE [Suspect]

REACTIONS (6)
  - ARTHRALGIA [None]
  - ARTHRITIS [None]
  - BACK PAIN [None]
  - HEPATIC ENZYME INCREASED [None]
  - JOINT STIFFNESS [None]
  - PAIN [None]
